FAERS Safety Report 9171855 (Version 1)
Quarter: 2013Q1

REPORT INFORMATION
  Report Type: Spontaneous
  Country: US (occurrence: US)
  Receive Date: 20130319
  Receipt Date: 20130319
  Transmission Date: 20140127
  Serious: Yes (Hospitalization)
  Sender: FDA-Public Use
  Company Number: US-ASTRAZENECA-2013SE16541

PATIENT
  Sex: Female
  Weight: 3.6 kg

DRUGS (1)
  1. SEROQUEL XR [Suspect]
     Route: 064
     Dates: start: 20090317, end: 20120630

REACTIONS (2)
  - Pulmonary oedema neonatal [Recovered/Resolved]
  - Umbilical cord around neck [Recovered/Resolved]
